FAERS Safety Report 12539537 (Version 2)
Quarter: 2016Q3

REPORT INFORMATION
  Report Type: Spontaneous
  Country: US (occurrence: US)
  Receive Date: 20160708
  Receipt Date: 20160714
  Transmission Date: 20161109
  Serious: Yes (Life-Threatening, Hospitalization, Other)
  Sender: FDA-Public Use
  Company Number: US-ACTAVIS-2016-14798

PATIENT
  Age: 40 Year
  Sex: Male

DRUGS (5)
  1. AVASTIN [Suspect]
     Active Substance: BEVACIZUMAB
     Indication: COLORECTAL CANCER
     Dosage: 7.5 MG/KG, 1/ THREE WEEKS
     Route: 042
  2. FLUOROURACIL. [Suspect]
     Active Substance: FLUOROURACIL
     Indication: COLORECTAL CANCER
     Dosage: 2400 MG/M2, CYCLICAL, CONTINUOUS INFUSION OVER 46 H BEGINNING ON DAY 1; CYCLE REPEATED EVERY 14 DAYS
     Route: 042
  3. FOLINIC ACID [Suspect]
     Active Substance: LEUCOVORIN
     Indication: COLORECTAL CANCER
     Dosage: 400 MG/M2, CYCLICAL, OVER 2 H ON DAY 1; CYCLE REPEATED EVERY 14 DAYS
     Route: 042
  4. FLUOROURACIL. [Suspect]
     Active Substance: FLUOROURACIL
     Dosage: 400 MG/M2, CYCLICAL, ON DAY 1, CYCLE REPEATED EVERY 14 DAYS
     Route: 040
  5. IRINOTECAN HYDROCHLORIDE (ATLLC) [Suspect]
     Active Substance: IRINOTECAN HYDROCHLORIDE
     Indication: COLORECTAL CANCER
     Dosage: 180 MG/M2, CYCLICAL, OVER 90 MIN ON DAY 1; CYCLE REPEATED EVERY 14 DAYS
     Route: 042

REACTIONS (3)
  - Hyperammonaemic encephalopathy [Recovered/Resolved]
  - Vomiting [Recovered/Resolved]
  - Nausea [Recovered/Resolved]

NARRATIVE: CASE EVENT DATE: 20150511
